FAERS Safety Report 14672576 (Version 3)
Quarter: 2018Q3

REPORT INFORMATION
  Report Type: Spontaneous
  Country: US (occurrence: US)
  Receive Date: 20180323
  Receipt Date: 20180710
  Transmission Date: 20181010
  Serious: No
  Sender: FDA-Public Use
  Company Number: US-PFIZER INC-2018120766

PATIENT
  Age: 51 Year
  Sex: Female

DRUGS (1)
  1. METHOTREXATE SODIUM. [Suspect]
     Active Substance: METHOTREXATE SODIUM
     Dosage: 0.6 ML (0.6 CC)

REACTIONS (7)
  - Alopecia [Unknown]
  - Fall [Unknown]
  - Pain [Unknown]
  - Contusion [Recovered/Resolved]
  - Joint swelling [Unknown]
  - Mobility decreased [Unknown]
  - Arthralgia [Unknown]
